FAERS Safety Report 5405831-7 (Version None)
Quarter: 2007Q3

REPORT INFORMATION
  Report Type: 
  Country: None (occurrence: None)
  Receive Date: 20070802
  Receipt Date: 20070724
  Transmission Date: 20080115
  Serious: Yes (Other)
  Sender: FDA-Public Use
  Company Number: TPA2007A01562

PATIENT
  Age: 69 Year
  Sex: Female
  Weight: 70.7611 kg

DRUGS (4)
  1. ROZEREM [Suspect]
     Indication: INSOMNIA
     Dosage: 8 MG, HS, PER ORAL
     Route: 048
     Dates: start: 20070630, end: 20070723
  2. NIFEDIPINE [Concomitant]
  3. COREG CR (CARVEDILOL) [Concomitant]
  4. LEXAPRO [Concomitant]

REACTIONS (7)
  - CONDITION AGGRAVATED [None]
  - DECREASED APPETITE [None]
  - DEPRESSION [None]
  - LETHARGY [None]
  - NAUSEA [None]
  - VAGINAL HAEMORRHAGE [None]
  - WEIGHT DECREASED [None]
